FAERS Safety Report 6155391-0 (Version None)
Quarter: 2009Q2

REPORT INFORMATION
  Report Type: 
  Country: None (occurrence: None)
  Receive Date: 20090415
  Receipt Date: 20090311
  Transmission Date: 20091009
  Serious: No
  Sender: FDA-Public Use
  Company Number: US-BAYER-200910809BCC

PATIENT
  Age: 28 Year
  Sex: Female
  Weight: 95 kg

DRUGS (5)
  1. ALEVE [Suspect]
     Indication: PAIN
     Dosage: 2 TABLETS FOLLOWED BY 2 MORE TABLETS (4 TO 6 HOURS LATER)
     Route: 048
     Dates: start: 20090307
  2. ALEVE [Suspect]
     Route: 048
     Dates: start: 20090308, end: 20090301
  3. PERCOCET [Concomitant]
     Indication: DRUG USE FOR UNKNOWN INDICATION
     Route: 065
  4. UNKNOWN HIGH BLOOD PRESSURE MEDICATION [Concomitant]
     Indication: HYPERTENSION
     Route: 065
  5. FAMOTIDINE [Concomitant]
     Indication: ABDOMINAL DISCOMFORT
     Route: 065

REACTIONS (2)
  - ANOREXIA [None]
  - VOMITING [None]
